FAERS Safety Report 24705382 (Version 1)
Quarter: 2024Q4

REPORT INFORMATION
  Report Type: Spontaneous
  Country: JP (occurrence: JP)
  Receive Date: 20241206
  Receipt Date: 20241206
  Transmission Date: 20250114
  Serious: Yes (Other)
  Sender: RANBAXY
  Company Number: JP-SUN PHARMACEUTICAL INDUSTRIES LTD-2024R1-482614

PATIENT
  Age: 44 Year
  Sex: Female

DRUGS (1)
  1. LANSOPRAZOLE [Suspect]
     Active Substance: LANSOPRAZOLE
     Indication: Oesophagitis
     Dosage: 30 MILLIGRAM
     Route: 048

REACTIONS (1)
  - Endometritis [Recovering/Resolving]
